FAERS Safety Report 9137785 (Version 2)
Quarter: 2013Q2

REPORT INFORMATION
  Report Type: Spontaneous
  Country: US (occurrence: US)
  Receive Date: 20130304
  Receipt Date: 20130409
  Transmission Date: 20140414
  Serious: Yes (Hospitalization, Other)
  Sender: FDA-Public Use
  Company Number: US-ALEXION PHARMACEUTICALS INC.-A201300321

PATIENT
  Sex: Female
  Weight: 52.1 kg

DRUGS (12)
  1. SOLIRIS 300MG [Suspect]
     Indication: PAROXYSMAL NOCTURNAL HAEMOGLOBINURIA
     Dosage: 900 MG, Q2W
     Route: 042
     Dates: start: 20070720
  2. ALENDRONATE SODIUM [Concomitant]
     Dosage: 70 MG, QW
     Route: 048
  3. POTASSIUM CHLORIDE [Concomitant]
     Dosage: 10 MEQ, UNK
     Route: 048
  4. AMBIEN [Concomitant]
     Dosage: 10 MG, QD
     Route: 048
  5. ATIVAN [Concomitant]
     Dosage: 1 MG, TID
     Route: 048
  6. TRAZODONE HCL [Concomitant]
     Dosage: 50 MG, QD
     Route: 048
  7. PREDNISONE [Concomitant]
     Dosage: 20 MG, BID PRN
     Route: 048
  8. EMLA [Concomitant]
     Dosage: 30 G, APPLY TO PORT SITE
     Route: 061
  9. PHENERGAN [Concomitant]
     Indication: NAUSEA
     Dosage: 25 MG, QID
  10. IRON [Concomitant]
     Dosage: UNK
  11. FOLIC ACID [Concomitant]
     Dosage: 1 MG, QD
  12. MENINGOCOCCAL VACCINE [Concomitant]
     Indication: IMMUNISATION
     Dosage: UNK
     Dates: start: 201008, end: 201008

REACTIONS (4)
  - Menorrhagia [Unknown]
  - Haemoglobin decreased [Unknown]
  - Menopausal symptoms [Not Recovered/Not Resolved]
  - Viral upper respiratory tract infection [Recovered/Resolved]
